FAERS Safety Report 24581340 (Version 1)
Quarter: 2024Q4

REPORT INFORMATION
  Report Type: Report from Study
  Country: US (occurrence: US)
  Receive Date: 20241105
  Receipt Date: 20241105
  Transmission Date: 20250115
  Serious: Yes (Hospitalization)
  Sender: TEVA
  Company Number: US-TEVA-VS-3260494

PATIENT
  Age: 84 Year
  Sex: Male

DRUGS (2)
  1. MORPHINE [Interacting]
     Active Substance: MORPHINE
     Indication: Fracture pain
     Route: 065
  2. KETAMINE [Interacting]
     Active Substance: KETAMINE
     Indication: Sedative therapy
     Route: 065

REACTIONS (2)
  - Apnoea [Recovered/Resolved]
  - Drug interaction [Unknown]
